FAERS Safety Report 4731237-X (Version None)
Quarter: 2005Q3

REPORT INFORMATION
  Report Type: 
  Country: None (occurrence: None)
  Receive Date: 20050802
  Receipt Date: 20050721
  Transmission Date: 20060218
  Serious: Yes (Life-Threatening, Hospitalization, Disabling)
  Sender: FDA-Public Use
  Company Number: CA-JNJFOC-20050402591

PATIENT
  Sex: Female
  Weight: 52.5 kg

DRUGS (12)
  1. REMICADE [Suspect]
     Indication: DRUG USE FOR UNKNOWN INDICATION
     Route: 042
  2. DOCUSATE SODIUM [Concomitant]
     Indication: CONSTIPATION
     Dosage: AT NIGHT
  3. SENNA [Concomitant]
     Indication: CONSTIPATION
     Dosage: AT NIGHT
  4. FOSAMAX [Concomitant]
  5. CODEINE [Concomitant]
     Indication: PAIN
     Dosage: 30 MG 1-2 TABS EVERY THREE HOURS PRN
  6. CODEINE CONTIN [Concomitant]
  7. CODEINE CONTIN [Concomitant]
  8. GABAPENTIN [Concomitant]
  9. CALCIUM 500 + D400 [Concomitant]
  10. CALCIUM 500 + D400 [Concomitant]
  11. FOLIC ACID [Concomitant]
     Dosage: 5 MG 1/2 TAB EVERY AM
  12. METHOTREXATE [Concomitant]
     Dosage: S/C

REACTIONS (1)
  - METASTATIC NEOPLASM [None]
